FAERS Safety Report 7803850-4 (Version None)
Quarter: 2011Q4

REPORT INFORMATION
  Report Type: 
  Country: None (occurrence: None)
  Receive Date: 20111010
  Receipt Date: 20110927
  Transmission Date: 20120403
  Serious: No
  Sender: FDA-Public Use
  Company Number: US-JNJFOC-20111000056

PATIENT
  Sex: Female
  Weight: 99.79 kg

DRUGS (5)
  1. FENTANYL [Suspect]
     Route: 062
     Dates: start: 20110901
  2. CRESTOR [Concomitant]
     Indication: BLOOD CHOLESTEROL
     Route: 048
  3. NEXIUM [Concomitant]
     Indication: GASTRIC DISORDER
     Dosage: 1-2
     Route: 048
  4. DIOVAN [Concomitant]
     Indication: HYPERTENSION
     Dosage: 160/25
     Route: 048
  5. FENTANYL [Suspect]
     Indication: SCIATICA
     Route: 062

REACTIONS (3)
  - WRONG TECHNIQUE IN DRUG USAGE PROCESS [None]
  - DRUG INEFFECTIVE [None]
  - PRODUCT QUALITY ISSUE [None]
